FAERS Safety Report 20071488 (Version 1)
Quarter: 2021Q4

REPORT INFORMATION
  Report Type: Report from Study
  Country: US (occurrence: US)
  Receive Date: 20211115
  Receipt Date: 20211115
  Transmission Date: 20220303
  Serious: Yes (Other)
  Sender: FDA-Public Use
  Company Number: US-ABBVIE-21K-163-4158135-00

PATIENT
  Sex: Female

DRUGS (1)
  1. SKYRIZI [Suspect]
     Active Substance: RISANKIZUMAB-RZAA
     Indication: Psoriasis
     Route: 058

REACTIONS (6)
  - Rash [Not Recovered/Not Resolved]
  - Renal transplant [Unknown]
  - Lower limb fracture [Unknown]
  - Gait disturbance [Unknown]
  - Skin discolouration [Unknown]
  - Fall [Unknown]
